FAERS Safety Report 14525652 (Version 1)
Quarter: 2018Q1

REPORT INFORMATION
  Report Type: Spontaneous
  Country: None (occurrence: US)
  Receive Date: 20180213
  Receipt Date: 20180213
  Transmission Date: 20180509
  Serious: Yes (Other)
  Sender: FDA-Public Use
  Company Number: US-AUROBINDO-AUR-APL-2018-005274

PATIENT

DRUGS (1)
  1. METHYLPREDNISOLONE 500MG/VIAL [Suspect]
     Active Substance: METHYLPREDNISOLONE
     Indication: VENOOCCLUSIVE LIVER DISEASE
     Dosage: 500 MG/M2, TWO TIMES A DAY
     Route: 042

REACTIONS (5)
  - Multiple organ dysfunction syndrome [Recovered/Resolved]
  - Acute lymphocytic leukaemia [Recovered/Resolved]
  - Renal impairment [Recovered/Resolved]
  - Hyperglycaemia [Unknown]
  - Lung disorder [Recovered/Resolved]
